FAERS Safety Report 15746018 (Version 1)
Quarter: 2018Q4

REPORT INFORMATION
  Report Type: Spontaneous
  Country: US (occurrence: US)
  Receive Date: 20181220
  Receipt Date: 20181220
  Transmission Date: 20190205
  Serious: Yes (Other)
  Sender: FDA-Public Use
  Company Number: US-PFIZER INC-2018518190

PATIENT
  Age: 54 Year
  Sex: Female
  Weight: 80.29 kg

DRUGS (3)
  1. LYRICA [Suspect]
     Active Substance: PREGABALIN
     Indication: FIBROMYALGIA
     Dosage: 50 MG, UNK
  2. HYDROCODONE/ACETAMINOPHEN [Concomitant]
     Active Substance: ACETAMINOPHEN\HYDROCODONE
     Indication: PAIN
     Dosage: 1 DF, UNK  [325 MG PARACETAMOL,  5 MG HYDROCODONE BITARTRATE] [ONE TABLET BY MOUTH EVERY MORNING AN]
     Route: 048
     Dates: start: 2015
  3. LYRICA [Suspect]
     Active Substance: PREGABALIN
     Indication: PAIN
     Dosage: 150 MG, ONCE A DAY (THREE 50 MILLIGRAM CAPSULES ONCE PER DAY IN THE EVENING)
     Route: 048
     Dates: start: 2013

REACTIONS (6)
  - Osteoarthritis [Not Recovered/Not Resolved]
  - Therapeutic response unexpected [Unknown]
  - Intentional product use issue [Unknown]
  - Fatigue [Not Recovered/Not Resolved]
  - Rheumatoid arthritis [Not Recovered/Not Resolved]
  - Product use issue [Unknown]

NARRATIVE: CASE EVENT DATE: 2013
